FAERS Safety Report 8798129 (Version 1)
Quarter: 2012Q4

REPORT INFORMATION
  Report Type: 
  Country: ZA (occurrence: ZA)
  Receive Date: 20120920
  Receipt Date: 20120920
  Transmission Date: 20130627
  Serious: Yes (Other)
  Sender: FDA-Public Use
  Company Number: ZA-BAYER-2012-080181

PATIENT
  Sex: Female

DRUGS (9)
  1. AVELON [Suspect]
     Indication: COUGH
  2. AVELON [Suspect]
     Indication: FEELING HOT
  3. AVELON [Suspect]
     Indication: DIZZINESS
  4. ACTIFED [Suspect]
     Indication: COUGH
  5. ACTIFED [Suspect]
     Indication: FEELING HOT
  6. ACTIFED [Suspect]
     Indication: DIZZINESS
  7. PANTOPRAZOLE [Suspect]
     Indication: COUGH
  8. PANTOPRAZOLE [Suspect]
     Indication: FEELING HOT
  9. PANTOPRAZOLE [Suspect]
     Indication: DIZZINESS

REACTIONS (3)
  - Vomiting [Recovered/Resolved]
  - Aphagia [Recovered/Resolved]
  - Nausea [Recovered/Resolved]
